FAERS Safety Report 5515897-1 (Version None)
Quarter: 2007Q4

REPORT INFORMATION
  Report Type: 
  Country: None (occurrence: None)
  Receive Date: 20071109
  Receipt Date: 20071024
  Transmission Date: 20080405
  Serious: Yes (Other)
  Sender: FDA-Public Use
  Company Number: A-CH2007-18262

PATIENT
  Age: 48 Year
  Sex: Male
  Weight: 27.2158 kg

DRUGS (1)
  1. ZAVESCA [Suspect]
     Indication: GAUCHER'S DISEASE
     Dosage: ORAL
     Route: 048
     Dates: start: 20061001, end: 20070703

REACTIONS (4)
  - BONE PAIN [None]
  - DIARRHOEA [None]
  - OSTEOLYSIS [None]
  - SPINAL COMPRESSION FRACTURE [None]
